FAERS Safety Report 5266530-8 (Version None)
Quarter: 2007Q1

REPORT INFORMATION
  Report Type: 
  Country: None (occurrence: None)
  Receive Date: 20070315
  Receipt Date: 20070306
  Transmission Date: 20070707
  Serious: Yes (Hospitalization)
  Sender: FDA-Public Use
  Company Number: DE-ROXANE LABORATORIES, INC-2007-DE-01350DE

PATIENT
  Sex: Female
  Weight: 82 kg

DRUGS (9)
  1. BUSCOPAN [Suspect]
     Route: 048
  2. CARBOSYLANE [Suspect]
     Route: 048
  3. CLOMIFEN [Suspect]
     Route: 048
  4. EFFERALGAN CODEINE [Suspect]
     Route: 048
  5. MAALOXAN [Suspect]
     Route: 048
  6. PSEUDOEPHEDRIN [Suspect]
     Route: 048
  7. RANITIDINE HCL [Suspect]
     Route: 048
  8. RIOPAN [Suspect]
     Route: 048
  9. TALCID [Suspect]
     Route: 048

REACTIONS (3)
  - DRUG ABUSER [None]
  - OVERDOSE [None]
  - SUICIDE ATTEMPT [None]
